FAERS Safety Report 17137058 (Version 1)
Quarter: 2019Q4

REPORT INFORMATION
  Report Type: Spontaneous
  Country: CA (occurrence: CA)
  Receive Date: 20191210
  Receipt Date: 20191210
  Transmission Date: 20200122
  Serious: Yes (Death, Hospitalization, Other)
  Sender: FDA-Public Use
  Company Number: CA-ALLERGAN-1949632US

PATIENT
  Sex: Male

DRUGS (4)
  1. APO-AZATHIOPRINE [Suspect]
     Active Substance: AZATHIOPRINE
     Indication: COLITIS
  2. INFLIXIMAB [Suspect]
     Active Substance: INFLIXIMAB
     Indication: COLITIS
     Dosage: 5 MG/KG
  3. MESALAZINE UNK [Suspect]
     Active Substance: MESALAMINE
     Indication: COLITIS
  4. APO-PREDNISONE [Suspect]
     Active Substance: PREDNISONE
     Indication: STEROID THERAPY
     Dosage: 15 MG, QD

REACTIONS (6)
  - Drug ineffective [Fatal]
  - Haemophagocytic lymphohistiocytosis [Fatal]
  - Histoplasmosis [Fatal]
  - Drug use disorder [Fatal]
  - Cytomegalovirus colitis [Fatal]
  - Cytomegalovirus viraemia [Fatal]
